FAERS Safety Report 5427671-5 (Version None)
Quarter: 2007Q3

REPORT INFORMATION
  Report Type: 
  Country: None (occurrence: None)
  Receive Date: 20070823
  Receipt Date: 20070808
  Transmission Date: 20080115
  Serious: Yes (Hospitalization, Other)
  Sender: FDA-Public Use
  Company Number: 310007M07FRA

PATIENT
  Age: 30 Year
  Sex: Female

DRUGS (1)
  1. GONAL-F [Suspect]
     Dates: start: 20030101, end: 20030101

REACTIONS (4)
  - BREAST CANCER FEMALE [None]
  - DRUG EXPOSURE BEFORE PREGNANCY [None]
  - OESTROGEN RECEPTOR ASSAY POSITIVE [None]
  - PREGNANCY [None]
